FAERS Safety Report 9454774 (Version 1)
Quarter: 2013Q3

REPORT INFORMATION
  Report Type: Spontaneous
  Country: FR (occurrence: FR)
  Receive Date: 20130812
  Receipt Date: 20130812
  Transmission Date: 20140515
  Serious: Yes (Hospitalization)
  Sender: FDA-Public Use
  Company Number: FR-B.I. PHARMACEUTICALS,INC./RIDGEFIELD-2013-FF-02076FF

PATIENT
  Age: 61 Year
  Sex: Male

DRUGS (6)
  1. MECIR [Suspect]
     Dosage: 0.4 MG
     Route: 048
     Dates: start: 20130604, end: 20130611
  2. AMOXICILLINE PANPHARMA [Suspect]
     Dosage: 4 G
     Route: 042
     Dates: start: 20130529, end: 20130608
  3. ULCAR [Suspect]
     Dosage: 2 G
     Route: 048
     Dates: start: 20130525, end: 20130611
  4. TERBUTALINE ARROW [Concomitant]
     Dosage: 5 MG/2 ML
     Route: 055
     Dates: start: 20130523, end: 20130611
  5. IPRATROPIUM MYLAN [Concomitant]
     Dosage: 0.5 MG/ 2 ML
     Route: 055
     Dates: start: 20130523, end: 20130611
  6. HALDOL [Concomitant]
     Dates: start: 2013

REACTIONS (1)
  - Neutropenia [Recovered/Resolved]
